FAERS Safety Report 25499022 (Version 2)
Quarter: 2025Q3

REPORT INFORMATION
  Report Type: Spontaneous
  Country: AU (occurrence: AU)
  Receive Date: 20250701
  Receipt Date: 20250710
  Transmission Date: 20251021
  Serious: Yes (Life-Threatening, Hospitalization, Other)
  Sender: AUROBINDO
  Company Number: AU-AUROBINDO-AUR-APL-2025-031875

PATIENT
  Age: 17 Year
  Sex: Female

DRUGS (5)
  1. CARBOPLATIN [Suspect]
     Active Substance: CARBOPLATIN
     Indication: Astrocytoma
     Route: 065
  2. THIOGUANINE ANHYDROUS [Suspect]
     Active Substance: THIOGUANINE ANHYDROUS
     Indication: Astrocytoma, low grade
     Route: 065
  3. PROCARBAZINE [Suspect]
     Active Substance: PROCARBAZINE
     Indication: Astrocytoma, low grade
     Route: 065
  4. LOMUSTINE [Suspect]
     Active Substance: LOMUSTINE
     Indication: Astrocytoma, low grade
     Route: 065
  5. VINCRISTINE [Suspect]
     Active Substance: VINCRISTINE
     Indication: Astrocytoma
     Route: 065

REACTIONS (1)
  - Myelodysplastic syndrome [Unknown]

NARRATIVE: CASE EVENT DATE: 20230301
